FAERS Safety Report 20766374 (Version 3)
Quarter: 2022Q3

REPORT INFORMATION
  Report Type: Spontaneous
  Country: US (occurrence: US)
  Receive Date: 20220428
  Receipt Date: 20220812
  Transmission Date: 20221027
  Serious: Yes (Other)
  Sender: FDA-Public Use
  Company Number: US-009507513-2204USA006446

PATIENT
  Sex: Female
  Weight: 63.5 kg

DRUGS (3)
  1. PNEUMOVAX 23 [Suspect]
     Active Substance: PNEUMOCOCCAL VACCINE, POLYVALENT 23
     Indication: Prophylaxis
     Dosage: 1 DOSAGE FORM
     Dates: start: 20200818
  2. ZOSTAVAX [Suspect]
     Active Substance: VARICELLA-ZOSTER VIRUS STRAIN OKA/MERCK LIVE ANTIGEN
     Indication: Prophylaxis
     Dosage: 1 DOSAGE FORM
     Dates: start: 2018
  3. PRINIVIL [Concomitant]
     Active Substance: LISINOPRIL
     Indication: Hypertension
     Dosage: 10 MG, ONCE A DAY IN THE MORNING, BY MOUTH.
     Route: 048
     Dates: start: 2016

REACTIONS (9)
  - Loss of consciousness [Unknown]
  - Feeling abnormal [Unknown]
  - Feeling abnormal [Unknown]
  - Malaise [Unknown]
  - Vaccination site swelling [Unknown]
  - Vaccination site pain [Unknown]
  - Vaccination site erythema [Recovered/Resolved]
  - Vaccination site warmth [Recovered/Resolved]
  - Vaccination site discomfort [Recovered/Resolved]

NARRATIVE: CASE EVENT DATE: 20200101
